FAERS Safety Report 4810675-0 (Version None)
Quarter: 2005Q4

REPORT INFORMATION
  Report Type: 
  Country: None (occurrence: None)
  Receive Date: 20051026
  Receipt Date: 20051020
  Transmission Date: 20060501
  Serious: Yes (Other)
  Sender: FDA-Public Use
  Company Number: DK-MERCK-0510DNK00014

PATIENT
  Age: 5 Year
  Sex: Male
  Weight: 34 kg

DRUGS (2)
  1. SINGULAIR [Suspect]
     Route: 048
     Dates: start: 20021104, end: 20030505
  2. BUDESONIDE [Concomitant]
     Route: 055

REACTIONS (1)
  - ENAMEL ANOMALY [None]
